FAERS Safety Report 25094072 (Version 1)
Quarter: 2025Q1

REPORT INFORMATION
  Report Type: Report from Study
  Country: CO (occurrence: CO)
  Receive Date: 20250319
  Receipt Date: 20250319
  Transmission Date: 20250408
  Serious: Yes (Death, Other)
  Sender: IPSEN BIOPHARMACEUTICALS, INC.
  Company Number: CO-IPSEN Group, Research and Development-2025-06193

PATIENT
  Age: 99 Year
  Sex: Male

DRUGS (1)
  1. LANREOTIDE ACETATE [Suspect]
     Active Substance: LANREOTIDE ACETATE
     Indication: Neuroendocrine tumour
     Dosage: DEEP SUBCUTANEOUS
     Route: 058
     Dates: start: 20221020, end: 20250213

REACTIONS (1)
  - Death [Fatal]

NARRATIVE: CASE EVENT DATE: 20250315
